FAERS Safety Report 5096684-8 (Version None)
Quarter: 2006Q3

REPORT INFORMATION
  Report Type: 
  Country: None (occurrence: None)
  Receive Date: 20060831
  Receipt Date: 20060818
  Transmission Date: 20061208
  Serious: Yes (Life-Threatening)
  Sender: FDA-Public Use
  Company Number: DE-2006-021142

PATIENT
  Age: 68 Year
  Sex: Female

DRUGS (1)
  1. ULTRAVIST 370 [Suspect]
     Indication: ARTERIOGRAM CORONARY
     Dosage: 170 ML, 1 DOSE
     Dates: start: 20060801, end: 20060801

REACTIONS (2)
  - CEREBRAL HAEMORRHAGE [None]
  - CORONARY ARTERY THROMBOSIS [None]
